FAERS Safety Report 16670348 (Version 1)
Quarter: 2019Q3

REPORT INFORMATION
  Report Type: Spontaneous
  Country: US (occurrence: US)
  Receive Date: 20190805
  Receipt Date: 20190805
  Transmission Date: 20191004
  Serious: No
  Sender: FDA-Public Use
  Company Number: US-RADIUS HEALTH INC.-2018US002745

PATIENT
  Sex: Female

DRUGS (1)
  1. TYMLOS [Suspect]
     Active Substance: ABALOPARATIDE
     Indication: OSTEOPOROSIS POSTMENOPAUSAL
     Dosage: 80 MCG QD
     Route: 058
     Dates: start: 20171027

REACTIONS (6)
  - Gastrointestinal disorder [Unknown]
  - Nausea [Unknown]
  - Product dose omission [Unknown]
  - Flatulence [Unknown]
  - Malaise [Unknown]
  - Fatigue [Unknown]
